FAERS Safety Report 5300077-5 (Version None)
Quarter: 2007Q2

REPORT INFORMATION
  Report Type: 
  Country: None (occurrence: None)
  Receive Date: 20070410
  Receipt Date: 20070404
  Transmission Date: 20071010
  Serious: Yes (Other)
  Sender: FDA-Public Use
  Company Number: THQ2007A00272

PATIENT
  Sex: Female

DRUGS (1)
  1. ACTOS [Suspect]
     Indication: DIABETES MELLITUS NON-INSULIN-DEPENDENT
     Dosage: 45 MG PER ORAL
     Route: 048
     Dates: start: 20000101

REACTIONS (3)
  - KNEE OPERATION [None]
  - WEIGHT INCREASED [None]
  - WEIGHT LOSS POOR [None]
